FAERS Safety Report 5721726-3 (Version None)
Quarter: 2008Q2

REPORT INFORMATION
  Report Type: 
  Country: None (occurrence: None)
  Receive Date: 20080429
  Receipt Date: 20070412
  Transmission Date: 20081010
  Serious: No
  Sender: FDA-Public Use
  Company Number: US-ASTRAZENECA-2007UW07221

PATIENT
  Age: 86 Year
  Sex: Male

DRUGS (5)
  1. NEXIUM [Suspect]
     Indication: OESOPHAGEAL ULCER
     Route: 048
  2. CHOLESTEROL MEDICATION [Concomitant]
  3. BLOOD PRESSURE MEDICATION [Concomitant]
  4. GLUCOSAMINE [Concomitant]
  5. VITAMINS [Concomitant]

REACTIONS (4)
  - COUGH [None]
  - ERUCTATION [None]
  - LOWER RESPIRATORY TRACT INFECTION [None]
  - NASOPHARYNGITIS [None]
